FAERS Safety Report 23857895 (Version 1)
Quarter: 2024Q2

REPORT INFORMATION
  Report Type: Spontaneous
  Country: CA (occurrence: CA)
  Receive Date: 20240515
  Receipt Date: 20240515
  Transmission Date: 20240716
  Serious: Yes (Life-Threatening)
  Sender: FDA-Public Use
  Company Number: None

PATIENT

DRUGS (3)
  1. ONCASPAR [Suspect]
     Active Substance: PEGASPARGASE
     Indication: Neoplasm malignant
     Dosage: UNK
     Route: 042
  2. DEXAMETHASONE [Concomitant]
     Active Substance: DEXAMETHASONE
     Indication: Product used for unknown indication
     Dosage: UNK
     Route: 065
  3. VINCRISTINE SULFATE [Concomitant]
     Active Substance: VINCRISTINE SULFATE
     Indication: Product used for unknown indication
     Dosage: UNK
     Route: 065

REACTIONS (8)
  - Cerebral venous sinus thrombosis [Recovered/Resolved]
  - Haemorrhagic stroke [Recovered/Resolved]
  - Infarction [Recovered/Resolved]
  - Muscle twitching [Recovered/Resolved]
  - Muscular weakness [Recovered/Resolved]
  - Partial seizures [Recovered/Resolved]
  - Swelling [Recovered/Resolved]
  - Tremor [Recovered/Resolved]
